FAERS Safety Report 16942735 (Version 1)
Quarter: 2019Q4

REPORT INFORMATION
  Report Type: Spontaneous
  Country: US (occurrence: US)
  Receive Date: 20191021
  Receipt Date: 20191021
  Transmission Date: 20200122
  Serious: No
  Sender: FDA-Public Use
  Company Number: US-IBSA PHARMA-TIR-2019-0474

PATIENT
  Sex: Female

DRUGS (3)
  1. TIROSINT [Suspect]
     Active Substance: LEVOTHYROXINE SODIUM
     Indication: HYPOTHYROIDISM
     Dosage: 50MCG
     Route: 048
     Dates: start: 2015, end: 201905
  2. TIROSINT-SOL [Suspect]
     Active Substance: LEVOTHYROXINE SODIUM
     Indication: HYPOTHYROIDISM
     Dosage: ONE 50MCG CAPSULE EVERY OTHER DAY ALTERNATING WITH ONE TIROSINT-SOL 50MCG/ML AMPULE
     Route: 048
     Dates: start: 201905
  3. TIROSINT [Suspect]
     Active Substance: LEVOTHYROXINE SODIUM
     Dosage: ONE 50MCG CAPSULE EVERY OTHER DAY ALTERNATING WITH ONE TIROSINT-SOL 50MCG/ML AMPULE
     Route: 048
     Dates: start: 201905

REACTIONS (5)
  - Feeling jittery [Unknown]
  - Vertigo [Unknown]
  - Nausea [Unknown]
  - Energy increased [Unknown]
  - Feeling abnormal [Unknown]

NARRATIVE: CASE EVENT DATE: 201905
